FAERS Safety Report 24453195 (Version 1)
Quarter: 2024Q4

REPORT INFORMATION
  Report Type: Spontaneous
  Country: US (occurrence: US)
  Receive Date: 20241017
  Receipt Date: 20241017
  Transmission Date: 20250115
  Serious: No
  Sender: SUNOVION
  Company Number: US-UROVANT SCIENCES GMBH-202406-URV-000825

PATIENT
  Age: 26 Year
  Sex: Female
  Weight: 117.91 kg

DRUGS (4)
  1. GEMTESA [Suspect]
     Active Substance: VIBEGRON
     Dosage: 1 TAB, QD
     Route: 065
  2. GEMTESA [Suspect]
     Active Substance: VIBEGRON
     Indication: Cystitis interstitial
  3. GEMTESA [Suspect]
     Active Substance: VIBEGRON
     Indication: Hypertonic bladder
  4. WELCHOL [Concomitant]
     Active Substance: COLESEVELAM HYDROCHLORIDE
     Indication: Bile acids abnormal
     Dosage: UNK
     Route: 065

REACTIONS (3)
  - Bile acids increased [Unknown]
  - Constipation [Not Recovered/Not Resolved]
  - Drug interaction [Unknown]
